FAERS Safety Report 14790493 (Version 1)
Quarter: 2018Q2

REPORT INFORMATION
  Report Type: Spontaneous
  Country: US (occurrence: US)
  Receive Date: 20180413
  Receipt Date: 20180413
  Transmission Date: 20180711
  Serious: No
  Sender: FDA-Public Use
  Company Number: None

PATIENT
  Age: 36 Year
  Sex: Female
  Weight: 131 kg

DRUGS (1)
  1. FERAHEME [Suspect]
     Active Substance: FERUMOXYTOL NON-STOICHIOMETRIC MAGNETITE
     Indication: ANAEMIA
     Route: 040
     Dates: start: 20180314, end: 20180314

REACTIONS (4)
  - Flushing [None]
  - Dyspnoea [None]
  - Hypoaesthesia [None]
  - Chest pain [None]

NARRATIVE: CASE EVENT DATE: 20180314
